FAERS Safety Report 8540066-0 (Version None)
Quarter: 2012Q3

REPORT INFORMATION
  Report Type: 
  Country: None (occurrence: None)
  Receive Date: 20120726
  Receipt Date: 20120724
  Transmission Date: 20120928
  Serious: Yes (Other)
  Sender: FDA-Public Use
  Company Number: BR-ROCHE-1012702

PATIENT
  Sex: Male
  Weight: 85 kg

DRUGS (9)
  1. CLONAZEPAM [Suspect]
  2. HALDOL [Concomitant]
     Indication: DELIRIUM
  3. CLONAZEPAM [Suspect]
  4. ANAFRANIL [Concomitant]
  5. DEPAKENE [Concomitant]
     Indication: BIPOLAR DISORDER
     Route: 048
  6. DEPAKENE [Concomitant]
     Route: 048
     Dates: start: 20110116
  7. PHENERGAN [Concomitant]
  8. NORTRIPTYLINE HCL [Suspect]
     Indication: SOCIAL PHOBIA
  9. CLONAZEPAM [Suspect]
     Indication: SOCIAL PHOBIA
     Route: 048
     Dates: start: 20090101

REACTIONS (6)
  - MALAISE [None]
  - DELIRIUM [None]
  - THINKING ABNORMAL [None]
  - BLOOD TRIGLYCERIDES INCREASED [None]
  - AGITATION [None]
  - INSOMNIA [None]
